FAERS Safety Report 5532997-0 (Version None)
Quarter: 2007Q4

REPORT INFORMATION
  Report Type: 
  Country: None (occurrence: None)
  Receive Date: 20071204
  Receipt Date: 20071122
  Transmission Date: 20080405
  Serious: Yes (Other)
  Sender: FDA-Public Use
  Company Number: JP-ELI_LILLY_AND_COMPANY-JP200711005799

PATIENT
  Sex: Male
  Weight: 66.8 kg

DRUGS (12)
  1. PEMETREXED [Suspect]
     Indication: PLEURAL MESOTHELIOMA MALIGNANT
     Dosage: 900 MG, OTHER
     Route: 042
     Dates: start: 20070419, end: 20070712
  2. PEMETREXED [Suspect]
     Dosage: 675 MG, OTHER
     Route: 042
     Dates: start: 20070831
  3. CISPLATIN [Suspect]
     Indication: PLEURAL MESOTHELIOMA MALIGNANT
     Dosage: 135 MG, OTHER
     Route: 042
     Dates: start: 20070419, end: 20070712
  4. CISPLATIN [Suspect]
     Dosage: 100 MG, OTHER
     Route: 042
     Dates: start: 20070831
  5. PANVITAN [Concomitant]
     Dosage: 1 G, DAILY (1/D)
     Route: 048
     Dates: start: 20070409, end: 20071104
  6. HYDROXOCOBALAMIN ACETATE [Concomitant]
     Dosage: 1 MG, OTHER
     Route: 030
     Dates: start: 20070409
  7. DECADRON /00016002/ [Concomitant]
     Indication: PROPHYLAXIS
     Dosage: 12 MG, OTHER
     Route: 042
     Dates: start: 20070419, end: 20071010
  8. DECADRON [Concomitant]
     Dosage: UNK, OTHER
     Route: 048
     Dates: start: 20070420, end: 20071103
  9. LOXONIN [Concomitant]
     Indication: CANCER PAIN
     Dosage: 180 MG, DAILY (1/D)
     Route: 048
     Dates: start: 20070423, end: 20071103
  10. MOBIC [Concomitant]
     Indication: CANCER PAIN
     Dosage: 10 MG, DAILY (1/D)
     Route: 048
     Dates: start: 20070817, end: 20070914
  11. OXYCONTIN [Concomitant]
     Indication: CANCER PAIN
     Dosage: UNK, DAILY (1/D)
     Route: 048
     Dates: start: 20070824, end: 20071103
  12. ANPEC [Concomitant]
     Indication: CANCER PAIN
     Dosage: 20 MG, DAILY (1/D)
     Route: 054
     Dates: start: 20070828, end: 20071103

REACTIONS (1)
  - HYPERKALAEMIA [None]
